FAERS Safety Report 5720034-4 (Version None)
Quarter: 2008Q2

REPORT INFORMATION
  Report Type: 
  Country: None (occurrence: None)
  Receive Date: 20080424
  Receipt Date: 20080414
  Transmission Date: 20081010
  Serious: Yes (Life-Threatening, Hospitalization, Other)
  Sender: FDA-Public Use
  Company Number: 2007-04482

PATIENT
  Age: 43 Year
  Sex: Female

DRUGS (9)
  1. QUASENSE (WATSON LABORATORIES)(ETHINYL ESTRADEIOL 0.03 MG, LEVONORGEST [Suspect]
     Indication: CONVULSION
     Dosage: 1 TABLET, DAILY, ORAL
     Route: 048
     Dates: start: 20070923
  2. QUASENSE (WATSON LABORATORIES)(ETHINYL ESTRADEIOL 0.03 MG, LEVONORGEST [Suspect]
     Indication: MENSTRUATION IRREGULAR
     Dosage: 1 TABLET, DAILY, ORAL
     Route: 048
     Dates: start: 20070923
  3. LAMICTAL [Suspect]
     Indication: COMPLEX PARTIAL SEIZURES
     Dosage: 300 MG, QAM/QPM, ORAL
     Route: 048
     Dates: start: 20060101
  4. KEPPRA [Suspect]
     Indication: GRAND MAL CONVULSION
     Dosage: 1500 MG, QAM 1250 MG QPM; 1250 MG, QAM/QPM
     Dates: end: 20070930
  5. KEPPRA [Suspect]
     Indication: GRAND MAL CONVULSION
     Dosage: 1500 MG, QAM 1250 MG QPM; 1250 MG, QAM/QPM
     Dates: start: 20071002
  6. SEASONALE [Suspect]
     Indication: HORMONE THERAPY
  7. DILANTIN [Suspect]
     Indication: CONVULSION
  8. ZONEGRAN [Suspect]
     Indication: CONVULSION
     Dosage: 200 MG, DAILY
  9. FUROSEMIDE [Concomitant]

REACTIONS (13)
  - BUNDLE BRANCH BLOCK RIGHT [None]
  - COMPLEX PARTIAL SEIZURES [None]
  - CONVULSION [None]
  - DIZZINESS [None]
  - DRUG INTERACTION [None]
  - DRUG LEVEL DECREASED [None]
  - ELECTROCARDIOGRAM ST SEGMENT ABNORMAL [None]
  - GRAND MAL CONVULSION [None]
  - HEADACHE [None]
  - MOUTH INJURY [None]
  - NERVOUSNESS [None]
  - SOMNOLENCE [None]
  - STATUS EPILEPTICUS [None]
